FAERS Safety Report 6131675-7 (Version None)
Quarter: 2009Q1

REPORT INFORMATION
  Report Type: 
  Country: None (occurrence: None)
  Receive Date: 20090325
  Receipt Date: 20090126
  Transmission Date: 20090719
  Serious: Yes (Death, Hospitalization)
  Sender: FDA-Public Use
  Company Number: US-BRISTOL-MYERS SQUIBB COMPANY-14484208

PATIENT
  Age: 50 Year
  Sex: Male
  Weight: 78 kg

DRUGS (10)
  1. ERBITUX [Suspect]
     Indication: COLORECTAL CANCER METASTATIC
     Dates: start: 20081223, end: 20081223
  2. BENADRYL [Concomitant]
     Indication: PREMEDICATION
     Route: 042
  3. AVASTIN [Concomitant]
  4. FLUOROURACIL [Concomitant]
  5. IRINOTECAN HCL [Concomitant]
  6. ALOXI [Concomitant]
     Indication: PREMEDICATION
     Route: 040
  7. TYLENOL [Concomitant]
     Indication: PREMEDICATION
     Dosage: 2 TABLETS
     Route: 048
  8. ATIVAN [Concomitant]
     Indication: PREMEDICATION
     Route: 042
  9. RANITIDINE [Concomitant]
     Indication: PREMEDICATION
     Route: 042
  10. DIPHENHYDRAMINE [Concomitant]
     Indication: PREMEDICATION
     Route: 042

REACTIONS (2)
  - DEATH [None]
  - HYPERSENSITIVITY [None]
